FAERS Safety Report 10543402 (Version 2)
Quarter: 2014Q4

REPORT INFORMATION
  Report Type: Spontaneous
  Country: CA (occurrence: CA)
  Receive Date: 20141027
  Receipt Date: 20141027
  Transmission Date: 20150529
  Serious: Yes (Other)
  Sender: FDA-Public Use
  Company Number: PHHY2014CA096912

PATIENT
  Age: 77 Year
  Sex: Male

DRUGS (4)
  1. PREDNISOLONE. [Interacting]
     Active Substance: PREDNISOLONE
     Dosage: 30 MG, QD
     Route: 065
  2. PREDNISOLONE. [Interacting]
     Active Substance: PREDNISOLONE
     Dosage: 10 MG, QD
     Route: 065
  3. CICLOSPORIN [Suspect]
     Active Substance: CYCLOSPORINE
     Indication: IMMUNOSUPPRESSION
     Dosage: 75 MG, BID (2.5MG/KG)
     Route: 065
  4. PREDNISOLONE. [Interacting]
     Active Substance: PREDNISOLONE
     Indication: ECZEMA
     Dosage: 5 MG, QD
     Route: 065

REACTIONS (10)
  - Cytomegalovirus infection [Unknown]
  - Cytomegalovirus chorioretinitis [Unknown]
  - Visual acuity reduced [Recovering/Resolving]
  - Uveitis [Unknown]
  - Drug interaction [Unknown]
  - Necrotising retinitis [Unknown]
  - Disease recurrence [Recovering/Resolving]
  - Iridocyclitis [Unknown]
  - Blindness [Recovering/Resolving]
  - Eczema [Recovering/Resolving]
